FAERS Safety Report 7316136-1 (Version None)
Quarter: 2011Q1

REPORT INFORMATION
  Report Type: 
  Country: None (occurrence: None)
  Receive Date: 20110225
  Receipt Date: 20110216
  Transmission Date: 20110831
  Serious: Yes (Hospitalization, Other)
  Sender: FDA-Public Use
  Company Number: US-ASTRAZENECA-2010SE21659

PATIENT
  Age: 75 Year
  Sex: Male
  Weight: 58 kg

DRUGS (3)
  1. SYMBICORT [Suspect]
     Dosage: 160/4.5 MCG, TWO TIMES A DAY
     Route: 055
     Dates: start: 20100501
  2. SYMBICORT [Suspect]
     Indication: CHRONIC OBSTRUCTIVE PULMONARY DISEASE
     Dosage: 160/4.5 MCG, TWO TIMES A DAY
     Route: 055
     Dates: start: 20080101, end: 20100401
  3. SYMBICORT [Suspect]
     Dosage: 160/4.5 MCG, THREE TIMES A DAY
     Route: 055
     Dates: start: 20100401, end: 20100501

REACTIONS (4)
  - CARDIAC VALVE DISEASE [None]
  - DYSPNOEA [None]
  - CEREBROVASCULAR ACCIDENT [None]
  - PNEUMONIA [None]
